FAERS Safety Report 22333217 (Version 2)
Quarter: 2023Q2

REPORT INFORMATION
  Report Type: Spontaneous
  Country: US (occurrence: US)
  Receive Date: 20230517
  Receipt Date: 20230609
  Transmission Date: 20230721
  Serious: No
  Sender: FDA-Public Use
  Company Number: US-IDORSIA-005053-2023-US

PATIENT
  Age: 30 Year
  Sex: Male

DRUGS (4)
  1. QUVIVIQ [Suspect]
     Active Substance: DARIDOREXANT
     Indication: Insomnia
     Dosage: 50 MG, QD
     Route: 048
     Dates: start: 20230331, end: 20230508
  2. QUVIVIQ [Suspect]
     Active Substance: DARIDOREXANT
     Dosage: 50 MG, QD
     Route: 048
     Dates: start: 20230513
  3. OMEPRAZOLE [Concomitant]
     Active Substance: OMEPRAZOLE
     Indication: Dyspepsia
  4. ROSUVASTATIN [Concomitant]
     Active Substance: ROSUVASTATIN

REACTIONS (2)
  - Product availability issue [Recovered/Resolved]
  - Insomnia [Recovered/Resolved]

NARRATIVE: CASE EVENT DATE: 20230508
